FAERS Safety Report 12302120 (Version 6)
Quarter: 2016Q3

REPORT INFORMATION
  Report Type: Spontaneous
  Country: US (occurrence: US)
  Receive Date: 20160425
  Receipt Date: 20160830
  Transmission Date: 20161109
  Serious: Yes (Other)
  Sender: FDA-Public Use
  Company Number: US-CELGENEUS-USA-2016045211

PATIENT
  Age: 66 Year
  Sex: Female

DRUGS (8)
  1. EXEMESTAN [Concomitant]
     Active Substance: EXEMESTANE
     Indication: BREAST CANCER
     Route: 065
  2. OTEZLA [Suspect]
     Active Substance: APREMILAST
     Route: 048
     Dates: start: 20160426
  3. OTEZLA [Suspect]
     Active Substance: APREMILAST
     Route: 048
     Dates: start: 201608
  4. RALOXIFENE. [Concomitant]
     Active Substance: RALOXIFENE
     Indication: PRODUCT USED FOR UNKNOWN INDICATION
     Route: 065
  5. IRBESARTAN. [Concomitant]
     Active Substance: IRBESARTAN
     Indication: HYPERTENSION
     Route: 065
  6. OTEZLA [Suspect]
     Active Substance: APREMILAST
     Indication: PSORIASIS
     Route: 048
     Dates: start: 20160403
  7. AVAPRO [Concomitant]
     Active Substance: IRBESARTAN
     Indication: PRODUCT USED FOR UNKNOWN INDICATION
     Route: 065
  8. OTEZLA [Suspect]
     Active Substance: APREMILAST
     Route: 048
     Dates: start: 2016, end: 201605

REACTIONS (4)
  - Diverticulitis [Recovered/Resolved]
  - Headache [Recovered/Resolved]
  - Abdominal discomfort [Recovered/Resolved]
  - Gastrooesophageal reflux disease [Not Recovered/Not Resolved]

NARRATIVE: CASE EVENT DATE: 20160526
